FAERS Safety Report 4922012-1 (Version None)
Quarter: 2006Q1

REPORT INFORMATION
  Report Type: 
  Country: None (occurrence: None)
  Receive Date: 20060224
  Receipt Date: 20060215
  Transmission Date: 20060701
  Serious: Yes (Disabling)
  Sender: FDA-Public Use
  Company Number: FR-SANOFI-SYNTHELABO-A02200600487

PATIENT
  Sex: Male

DRUGS (3)
  1. PLAVIX [Suspect]
     Indication: CORONARY ARTERY DISEASE
     Route: 048
     Dates: start: 20050901
  2. CHONDROSULF [Concomitant]
     Indication: OSTEOARTHRITIS
     Dosage: 900 MG
     Route: 048
     Dates: start: 20051201, end: 20060101
  3. LODALES [Concomitant]
     Route: 048
     Dates: start: 19940101

REACTIONS (2)
  - DYSPHEMIA [None]
  - SPEECH DISORDER [None]
